FAERS Safety Report 12147712 (Version 1)
Quarter: 2016Q1

REPORT INFORMATION
  Report Type: Report from Study
  Country: US (occurrence: US)
  Receive Date: 20160304
  Receipt Date: 20160304
  Transmission Date: 20160526
  Serious: Yes (Hospitalization, Other)
  Sender: FDA-Public Use
  Company Number: US-GILEAD-2016-0200619

PATIENT
  Age: 69 Year
  Sex: Male

DRUGS (1)
  1. LEDIPASVIR/SOFOSBUVIR [Suspect]
     Active Substance: LEDIPASVIR\SOFOSBUVIR
     Indication: HEPATITIS C
     Dosage: 1 DF, QD
     Route: 048
     Dates: start: 20151111, end: 20160203

REACTIONS (6)
  - Localised intraabdominal fluid collection [Unknown]
  - Pancreatic cyst rupture [Unknown]
  - Drug dose omission [Unknown]
  - Headache [Unknown]
  - Pancreatic cyst [Unknown]
  - Hepatic cancer [Not Recovered/Not Resolved]
